FAERS Safety Report 4326059-8 (Version None)
Quarter: 2004Q1

REPORT INFORMATION
  Report Type: 
  Country: None (occurrence: None)
  Receive Date: 20040323
  Receipt Date: 20040308
  Transmission Date: 20041129
  Serious: Yes (Hospitalization)
  Sender: FDA-Public Use
  Company Number: M04-341-066

PATIENT
  Age: 66 Year
  Sex: Male

DRUGS (1)
  1. VELCADE [Suspect]
     Indication: MULTIPLE MYELOMA
     Dosage: 1.3 MG/M2: INTRAVENOUS BOLUS
     Route: 040
     Dates: start: 20040202, end: 20040212

REACTIONS (5)
  - CIRCULATORY COLLAPSE [None]
  - DYSPHAGIA [None]
  - DYSPNOEA [None]
  - PARALYSIS [None]
  - PNEUMONIA ASPIRATION [None]
